FAERS Safety Report 8103775-3 (Version None)
Quarter: 2012Q1

REPORT INFORMATION
  Report Type: 
  Country: None (occurrence: None)
  Receive Date: 20120201
  Receipt Date: 20120127
  Transmission Date: 20120608
  Serious: Yes (Other)
  Sender: FDA-Public Use
  Company Number: US-ROXANE LABORATORIES, INC.-2012-RO-00560RO

PATIENT
  Age: 72 Year
  Sex: Male

DRUGS (2)
  1. MESALAMINE [Suspect]
     Indication: COLITIS
     Dosage: 1200 MG
  2. MERCAPTOPURINE [Suspect]
     Indication: COLITIS
     Dosage: 100 MG

REACTIONS (3)
  - RECTAL CANCER [None]
  - CERVICAL DYSPLASIA [None]
  - HUMAN PAPILLOMA VIRUS TEST POSITIVE [None]
